FAERS Safety Report 5996854-8 (Version None)
Quarter: 2008Q4

REPORT INFORMATION
  Report Type: 
  Country: None (occurrence: None)
  Receive Date: 20081208
  Receipt Date: 20081129
  Transmission Date: 20090506
  Serious: Yes (Other)
  Sender: FDA-Public Use
  Company Number: CHPA2008US21138

PATIENT
  Age: 51 Year
  Sex: Female
  Weight: 68 kg

DRUGS (2)
  1. NICOTINE [Suspect]
     Indication: SMOKING CESSATION THERAPY
     Dosage: 21 MG, QD, TRANSDERMAL
     Route: 062
     Dates: start: 20081125, end: 20081128
  2. NICOTINE [Suspect]

REACTIONS (4)
  - GENERALISED ERYTHEMA [None]
  - RASH GENERALISED [None]
  - RASH MACULAR [None]
  - TREATMENT NONCOMPLIANCE [None]
